FAERS Safety Report 6725834-X (Version None)
Quarter: 2010Q2

REPORT INFORMATION
  Report Type: 
  Country: None (occurrence: None)
  Receive Date: 20100514
  Receipt Date: 20100504
  Transmission Date: 20101027
  Serious: Yes (Other)
  Sender: FDA-Public Use
  Company Number: PHEH2006US11913

PATIENT
  Sex: Female
  Weight: 70.295 kg

DRUGS (11)
  1. AREDIA [Suspect]
  2. ZOMETA [Suspect]
  3. DILAUDID [Concomitant]
  4. NEURONTIN [Concomitant]
  5. GLIPIZIDE [Concomitant]
  6. INSULIN [Concomitant]
  7. PLAVIX [Concomitant]
  8. LISINOPRIL [Concomitant]
  9. ARANESP [Concomitant]
  10. TAXOL [Concomitant]
  11. TAXOTERE [Concomitant]

REACTIONS (27)
  - ANAEMIA [None]
  - ANXIETY [None]
  - BIOPSY THYROID GLAND [None]
  - CAROTID BRUIT [None]
  - CATARACT OPERATION [None]
  - DECREASED INTEREST [None]
  - DEFORMITY [None]
  - DEPRESSED MOOD [None]
  - EMOTIONAL DISTRESS [None]
  - FATIGUE [None]
  - GALLBLADDER DISORDER [None]
  - GENERAL PHYSICAL HEALTH DETERIORATION [None]
  - GLAUCOMA [None]
  - GOITRE [None]
  - HYPERTENSION [None]
  - HYPOPHAGIA [None]
  - LIFE EXPECTANCY SHORTENED [None]
  - LUNG NEOPLASM [None]
  - ONYCHOMYCOSIS [None]
  - OSTEOMYELITIS [None]
  - OSTEONECROSIS OF JAW [None]
  - PAIN [None]
  - PERIPHERAL VASCULAR DISORDER [None]
  - PLEURAL EFFUSION [None]
  - TOOTH EXTRACTION [None]
  - TOOTHACHE [None]
  - VISUAL ACUITY REDUCED [None]
